FAERS Safety Report 11211261 (Version 1)
Quarter: 2015Q2

REPORT INFORMATION
  Report Type: Spontaneous
  Country: US (occurrence: None)
  Receive Date: 20150619
  Receipt Date: 20150619
  Transmission Date: 20150821
  Serious: Yes (Hospitalization)
  Sender: FDA-Public Use
  Company Number: None

PATIENT
  Age: 71 Year
  Sex: Male
  Weight: 98.4 kg

DRUGS (9)
  1. PRAVACHOL [Concomitant]
     Active Substance: PRAVASTATIN SODIUM
  2. AMBIEN [Concomitant]
     Active Substance: ZOLPIDEM TARTRATE
  3. PROSCAR [Concomitant]
     Active Substance: FINASTERIDE
  4. PRINIVIL [Concomitant]
     Active Substance: LISINOPRIL
  5. CARDIZEM [Concomitant]
     Active Substance: DILTIAZEM HYDROCHLORIDE
     Route: 048
  6. TIKOSYN [Concomitant]
     Active Substance: DOFETILIDE
  7. WARFARIN [Suspect]
     Active Substance: WARFARIN
     Indication: ATRIAL FIBRILLATION
     Route: 048
  8. PLAVIX [Suspect]
     Active Substance: CLOPIDOGREL BISULFATE
     Indication: ATRIAL FIBRILLATION
     Route: 048
  9. FLOMAX [Concomitant]
     Active Substance: TAMSULOSIN HYDROCHLORIDE

REACTIONS (6)
  - Coagulopathy [None]
  - Binge drinking [None]
  - Epistaxis [None]
  - Ecchymosis [None]
  - Gingival bleeding [None]
  - International normalised ratio increased [None]

NARRATIVE: CASE EVENT DATE: 20150320
